FAERS Safety Report 9486462 (Version 1)
Quarter: 2013Q3

REPORT INFORMATION
  Report Type: Spontaneous
  Country: US (occurrence: None)
  Receive Date: 20130827
  Receipt Date: 20130827
  Transmission Date: 20140515
  Serious: Yes (Other)
  Sender: FDA-Public Use
  Company Number: None

PATIENT
  Age: 47 Year
  Sex: Female
  Weight: 99.34 kg

DRUGS (3)
  1. CITALOPRAM 15MG [Suspect]
     Indication: DEPRESSION
     Dosage: 1 ONCE DAILY TAKEN BY MOUTH
     Route: 048
     Dates: start: 20100912, end: 20130512
  2. BIRTH CONTROL PILLS [Concomitant]
  3. XANAX [Concomitant]

REACTIONS (2)
  - Euphoric mood [None]
  - Anger [None]
